FAERS Safety Report 8199477-8 (Version None)
Quarter: 2012Q1

REPORT INFORMATION
  Report Type: 
  Country: None (occurrence: None)
  Receive Date: 20120309
  Receipt Date: 20120305
  Transmission Date: 20120608
  Serious: Yes (Life-Threatening)
  Sender: FDA-Public Use
  Company Number: FR-ASTRAZENECA-2012SE15395

PATIENT
  Age: 1988 Day
  Sex: Female
  Weight: 20 kg

DRUGS (7)
  1. MEROPENEM [Suspect]
     Route: 042
     Dates: start: 20120113, end: 20120121
  2. TARGOCID [Suspect]
     Route: 042
     Dates: start: 20120113, end: 20120121
  3. FILGRASTIM [Concomitant]
     Route: 042
     Dates: start: 20120113
  4. LEFLUNOMIDE [Concomitant]
     Route: 048
     Dates: start: 20120105
  5. VFEND [Concomitant]
     Route: 042
  6. CYCLOSPORINE [Suspect]
     Indication: PROPHYLAXIS AGAINST TRANSPLANT REJECTION
     Route: 042
     Dates: start: 20111215, end: 20120124
  7. FOSCAVIR [Suspect]
     Route: 042
     Dates: start: 20120116, end: 20120125

REACTIONS (2)
  - POSTERIOR REVERSIBLE ENCEPHALOPATHY SYNDROME [None]
  - CONVULSION [None]
